FAERS Safety Report 19673710 (Version 1)
Quarter: 2021Q3

REPORT INFORMATION
  Report Type: Spontaneous
  Country: US (occurrence: US)
  Receive Date: 20210807
  Receipt Date: 20210807
  Transmission Date: 20211014
  Serious: Yes (Hospitalization, Disabling)
  Sender: FDA-Public Use
  Company Number: None

PATIENT
  Age: 68 Year
  Sex: Female
  Weight: 72 kg

DRUGS (13)
  1. SIMVASTATIN. [Suspect]
     Active Substance: SIMVASTATIN
     Indication: BLOOD CHOLESTEROL INCREASED
     Dosage: ?          QUANTITY:1 TABLET(S);?
     Route: 048
  2. VENTOLIN [Concomitant]
     Active Substance: ALBUTEROL SULFATE
  3. NASACORT [Concomitant]
     Active Substance: TRIAMCINOLONE ACETONIDE
  4. CALCIUM [Concomitant]
     Active Substance: CALCIUM
  5. ARNUITY ELLIPTA [Concomitant]
     Active Substance: FLUTICASONE FUROATE
  6. VITAMIN D [Concomitant]
     Active Substance: VITAMIN D NOS
  7. ATORVASTATIN [Suspect]
     Active Substance: ATORVASTATIN
     Indication: BLOOD CHOLESTEROL INCREASED
     Dosage: ?          QUANTITY:1 TABLET(S);?
     Route: 048
     Dates: start: 20201207, end: 20210607
  8. LYSINE [Concomitant]
     Active Substance: LYSINE
  9. MAGNESIUM [Concomitant]
     Active Substance: MAGNESIUM
  10. LOSARTAN. [Concomitant]
     Active Substance: LOSARTAN
  11. SENIOR MULTIVITAMINS [Concomitant]
     Active Substance: VITAMINS
  12. ULTRA COLLAGEN [Concomitant]
  13. FISH OIL [Concomitant]
     Active Substance: FISH OIL

REACTIONS (6)
  - Dysstasia [None]
  - Mobility decreased [None]
  - Lumbar vertebral fracture [None]
  - Spinal decompression [None]
  - Tendon injury [None]
  - Gait inability [None]

NARRATIVE: CASE EVENT DATE: 20201117
